FAERS Safety Report 20705161 (Version 7)
Quarter: 2022Q3

REPORT INFORMATION
  Report Type: Report from Study
  Country: CN (occurrence: CN)
  Receive Date: 20220413
  Receipt Date: 20220926
  Transmission Date: 20221026
  Serious: Yes (Hospitalization)
  Sender: FDA-Public Use
  Company Number: CN-ELI_LILLY_AND_COMPANY-CN202204002275

PATIENT
  Age: 64 Year
  Sex: Male
  Weight: 65 kg

DRUGS (32)
  1. PEMETREXED [Suspect]
     Active Substance: PEMETREXED
     Indication: Non-small cell lung cancer metastatic
     Dosage: 500 MG/M2, OTHER
     Route: 042
     Dates: start: 20200804, end: 20211214
  2. PEMETREXED [Suspect]
     Active Substance: PEMETREXED
     Dosage: 500 MG/M2, OTHER
     Route: 042
     Dates: start: 20220105, end: 20220105
  3. PEMETREXED [Suspect]
     Active Substance: PEMETREXED
     Dosage: 500 MG/M2, OTHER
     Route: 042
     Dates: start: 20220617
  4. PEMETREXED [Suspect]
     Active Substance: PEMETREXED
     Dosage: 500 MG/M2, OTHER
     Route: 042
     Dates: start: 20220819
  5. LENVATINIB MESYLATE [Concomitant]
     Active Substance: LENVATINIB MESYLATE
     Indication: Non-small cell lung cancer metastatic
     Dosage: 8 MG, DAILY
     Route: 048
     Dates: start: 20200804, end: 20220124
  6. LENVATINIB MESYLATE [Concomitant]
     Active Substance: LENVATINIB MESYLATE
     Dosage: 8 MG, DAILY
     Route: 048
     Dates: start: 20220125, end: 20220616
  7. LENVATINIB MESYLATE [Concomitant]
     Active Substance: LENVATINIB MESYLATE
     Dosage: 8 MG, DAILY
     Route: 048
     Dates: start: 20220708
  8. PEMBROLIZUMAB [Concomitant]
     Active Substance: PEMBROLIZUMAB
     Indication: Non-small cell lung cancer metastatic
     Dosage: 200 MG, OTHER
     Route: 042
     Dates: start: 20200804, end: 20220105
  9. PEMBROLIZUMAB [Concomitant]
     Active Substance: PEMBROLIZUMAB
     Dosage: 200 MG, OTHER
     Route: 042
     Dates: start: 20220125, end: 20220125
  10. PEMBROLIZUMAB [Concomitant]
     Active Substance: PEMBROLIZUMAB
     Dosage: 200 MG, OTHER
     Route: 042
     Dates: start: 20220617
  11. PEMBROLIZUMAB [Concomitant]
     Active Substance: PEMBROLIZUMAB
     Dosage: 200 MG, OTHER
     Route: 042
     Dates: start: 20220819
  12. CISPLATIN [Concomitant]
     Active Substance: CISPLATIN
     Indication: Non-small cell lung cancer metastatic
     Dosage: 75 MG, OTHER
     Route: 042
     Dates: start: 20200804, end: 20201021
  13. METOPROLOL SUCCINATE [Concomitant]
     Active Substance: METOPROLOL SUCCINATE
     Indication: Product used for unknown indication
     Dosage: 25 UG, UNKNOWN
     Route: 065
     Dates: start: 201501
  14. VALSARTAN [Concomitant]
     Active Substance: VALSARTAN
     Indication: Product used for unknown indication
     Dosage: 80 MG, UNKNOWN
     Route: 065
     Dates: start: 201501
  15. FELODIPINE [Concomitant]
     Active Substance: FELODIPINE
     Indication: Product used for unknown indication
     Dosage: 5 MG, UNKNOWN
     Route: 065
     Dates: start: 201501
  16. GLIMEPIRIDE [Concomitant]
     Active Substance: GLIMEPIRIDE
     Indication: Product used for unknown indication
     Dosage: 2 MG, UNKNOWN
     Route: 065
     Dates: start: 201801
  17. VITAMINS [Concomitant]
     Active Substance: VITAMINS
     Indication: Product used for unknown indication
     Dosage: 1 DOSAGE FORM, UNKNOWN
     Route: 065
     Dates: start: 20200717
  18. MOXIFLOXACIN HYDROCHLORIDE AND SODIUM CHLORID [Concomitant]
     Indication: Product used for unknown indication
     Dosage: 0.4 MG, UNKNOWN
     Route: 065
     Dates: start: 20200720
  19. POTASSIUM CHLORIDE [Concomitant]
     Active Substance: POTASSIUM CHLORIDE
     Indication: Product used for unknown indication
     Dosage: 1 G, UNKNOWN
     Route: 065
     Dates: start: 20210315
  20. CALCIUM CARBONATE\CHOLECALCIFEROL [Concomitant]
     Active Substance: CALCIUM CARBONATE\CHOLECALCIFEROL
     Indication: Product used for unknown indication
     Dosage: 0.6 G, UNKNOWN
     Route: 065
     Dates: start: 20210316
  21. COMPOUND CHLORHEXIDINE HYDROCHLORIDE [Concomitant]
     Indication: Product used for unknown indication
     Dosage: UNK, UNKNOWN
     Route: 065
     Dates: start: 20220329, end: 20220329
  22. CEFUROXIME SODIUM [Concomitant]
     Active Substance: CEFUROXIME SODIUM
     Indication: Product used for unknown indication
     Dosage: 0.75 G, UNKNOWN
     Dates: start: 20220330, end: 20220330
  23. SODIUM LACTATE RINGER^S [Concomitant]
     Indication: Product used for unknown indication
     Dosage: 500 ML, UNKNOWN
     Route: 042
     Dates: start: 20220330, end: 20220330
  24. CALCIUM GLUCONATE [Concomitant]
     Active Substance: CALCIUM GLUCONATE
     Indication: Product used for unknown indication
     Dosage: 1 G, UNKNOWN
     Route: 042
     Dates: start: 20220330, end: 20220330
  25. CLINDAMYCIN [Concomitant]
     Active Substance: CLINDAMYCIN
     Indication: Antiinflammatory therapy
     Dosage: UNK, UNKNOWN
     Route: 065
  26. CEFIXIME [Concomitant]
     Active Substance: CEFIXIME
     Indication: Antiinflammatory therapy
     Dosage: UNK, UNKNOWN
     Route: 065
  27. ERYTHROPOIETIN [Concomitant]
     Active Substance: ERYTHROPOIETIN
     Indication: Product used for unknown indication
     Dosage: UNK, UNKNOWN
     Route: 042
     Dates: start: 20210419, end: 20220210
  28. HERBALS\DIAMMONIUM GLYCYRRHIZINATE [Concomitant]
     Active Substance: HERBALS\DIAMMONIUM GLYCYRRHIZINATE
     Indication: Product used for unknown indication
     Dosage: 150 MG, UNKNOWN
     Route: 065
     Dates: start: 20210714, end: 20211014
  29. ACETAMINOPHEN\OXYCODONE HYDROCHLORIDE [Concomitant]
     Active Substance: ACETAMINOPHEN\OXYCODONE HYDROCHLORIDE
     Indication: Product used for unknown indication
     Dosage: UNK, UNKNOWN
     Route: 065
     Dates: start: 20200719, end: 202201
  30. CODEINE PHOSPHATE [Concomitant]
     Active Substance: CODEINE PHOSPHATE
     Indication: Product used for unknown indication
     Dosage: 30 MG, UNKNOWN
     Route: 065
     Dates: start: 20200720, end: 202202
  31. CEFUROXIME [Concomitant]
     Active Substance: CEFUROXIME
     Indication: Antiinflammatory therapy
     Dosage: UNK, UNKNOWN
     Route: 065
  32. CHLORHEXIDINE CO [CHLORHEXIDINE GLUCONATE;MET [Concomitant]
     Indication: Antiinflammatory therapy
     Dosage: UNK, UNKNOWN
     Route: 065

REACTIONS (1)
  - Osteonecrosis of jaw [Recovered/Resolved]

NARRATIVE: CASE EVENT DATE: 20220330
